FAERS Safety Report 4428241-8 (Version None)
Quarter: 2004Q3

REPORT INFORMATION
  Report Type: 
  Country: None (occurrence: None)
  Receive Date: 20040813
  Receipt Date: 20040802
  Transmission Date: 20050211
  Serious: No
  Sender: FDA-Public Use
  Company Number: 2004UW16434

PATIENT
  Age: 26 Year
  Sex: Male
  Weight: 79.3795 kg

DRUGS (6)
  1. SEROQUEL [Suspect]
     Indication: ANXIETY
     Dosage: 50 MG DAILY PO
     Route: 048
     Dates: start: 20040101
  2. SEROQUEL [Suspect]
     Indication: DEPRESSION
     Dosage: 50 MG DAILY PO
     Route: 048
     Dates: start: 20040101
  3. SEROQUEL [Suspect]
     Indication: ANXIETY
     Dosage: 125 MG DAILY PO
     Route: 048
     Dates: start: 20040101
  4. SEROQUEL [Suspect]
     Indication: DEPRESSION
     Dosage: 125 MG DAILY PO
     Route: 048
     Dates: start: 20040101
  5. SEROQUEL [Suspect]
     Indication: ANXIETY
     Dosage: 50 MG DAILY PO
     Route: 048
     Dates: start: 20040101
  6. SEROQUEL [Suspect]
     Indication: DEPRESSION
     Dosage: 50 MG DAILY PO
     Route: 048
     Dates: start: 20040101

REACTIONS (5)
  - AMNESIA [None]
  - DRUG INEFFECTIVE [None]
  - IMPRISONMENT [None]
  - LOSS OF CONSCIOUSNESS [None]
  - MEDICATION ERROR [None]
